FAERS Safety Report 9727843 (Version 2)
Quarter: 2014Q2

REPORT INFORMATION
  Report Type: Spontaneous
  Country: DE (occurrence: DE)
  Receive Date: 20131204
  Receipt Date: 20140528
  Transmission Date: 20141212
  Serious: Yes (Other)
  Sender: FDA-Public Use
  Company Number: DE-BIOGENIDEC-2011BI026985

PATIENT
  Age: 37 Year
  Sex: Female

DRUGS (2)
  1. TYSABRI [Suspect]
     Indication: MULTIPLE SCLEROSIS
     Dosage: EXPOSURE FROM 14 TO 34 GESTATION WEEK
     Route: 042
  2. TRIAMCINOLONE ACETONIDE [Concomitant]
     Indication: MULTIPLE SCLEROSIS RELAPSE
     Route: 037

REACTIONS (1)
  - Caesarean section [Recovered/Resolved]
